FAERS Safety Report 7564790-1 (Version None)
Quarter: 2011Q2

REPORT INFORMATION
  Report Type: 
  Country: None (occurrence: None)
  Receive Date: 20110622
  Receipt Date: 20101210
  Transmission Date: 20111010
  Serious: Yes (Other)
  Sender: FDA-Public Use
  Company Number: US-MYLANLABS-2010S1021680

PATIENT
  Age: 51 Year
  Sex: Male

DRUGS (2)
  1. ANTINEOPLASTIC AGENTS [Suspect]
     Indication: LUNG NEOPLASM MALIGNANT
  2. CLOZAPINE [Suspect]
     Route: 048
     Dates: end: 20101122

REACTIONS (3)
  - LEUKOPENIA [None]
  - AGRANULOCYTOSIS [None]
  - GRANULOCYTOPENIA [None]
